FAERS Safety Report 8782208 (Version 1)
Quarter: 2012Q4

REPORT INFORMATION
  Report Type: 
  Country: US (occurrence: US)
  Receive Date: 20120913
  Receipt Date: 20120913
  Transmission Date: 20130627
  Serious: No
  Sender: FDA-Public Use
  Company Number: US-VERTEX PHARMACEUTICAL INC.-2012-020012

PATIENT
  Sex: Male

DRUGS (6)
  1. VX-950 [Suspect]
     Indication: HEPATITIS C
     Dosage: 750 mg, UNK
     Route: 048
  2. PEGASYS [Concomitant]
     Indication: HEPATITIS C
     Dosage: 180 ?g, UNK
  3. RIBAVIRIN [Concomitant]
     Indication: HEPATITIS C
     Dosage: 200 mg, UNK
  4. LISINOPRIL [Concomitant]
     Dosage: 10 mg, UNK
  5. CALCIUM +D                      /00188401/ [Concomitant]
  6. MULTIVITAMIN                       /00097801/ [Concomitant]

REACTIONS (2)
  - Fatigue [Unknown]
  - Pruritus [Unknown]
